FAERS Safety Report 6992624-2 (Version None)
Quarter: 2010Q3

REPORT INFORMATION
  Report Type: 
  Country: None (occurrence: None)
  Receive Date: 20100917
  Receipt Date: 20100913
  Transmission Date: 20110219
  Serious: Yes (Death)
  Sender: FDA-Public Use
  Company Number: FR-ROCHE-726943

PATIENT
  Sex: Male
  Weight: 55 kg

DRUGS (10)
  1. ROCEPHIN [Suspect]
     Indication: PRODUCT USED FOR UNKNOWN INDICATION
     Dosage: TAKEN 1 GRAM AT 1 P.M. AND 2 GRAM AT 8 P.M., FORM: POWDER FOR SOLUTION FOR INJCETION.
     Route: 042
     Dates: start: 20100622, end: 20100623
  2. ERYTHROCINE [Suspect]
     Indication: PRODUCT USED FOR UNKNOWN INDICATION
     Dosage: FORM: INJECTABLE SOLUTION.
     Route: 042
     Dates: start: 20100622, end: 20100623
  3. TAVANIC [Suspect]
     Indication: PRODUCT USED FOR UNKNOWN INDICATION
     Route: 065
     Dates: start: 20100622, end: 20100622
  4. SPIRIVA [Concomitant]
     Dosage: LONG TERM TREATMENT
  5. SERETIDE [Concomitant]
     Dosage: LONG TERM TREATMENT
  6. LEVOTHYROXINE SODIUM [Concomitant]
     Dosage: LONG TERM TREATMENT
  7. LOVENOX [Concomitant]
     Route: 058
     Dates: start: 20100623, end: 20100623
  8. CREON [Concomitant]
     Dosage: LONG TERM TREATMENT
  9. ADRENALINE [Concomitant]
     Dates: start: 20100623
  10. CORDARONE [Concomitant]
     Dates: start: 20100623

REACTIONS (1)
  - ARRHYTHMIA [None]
